FAERS Safety Report 7300676-5 (Version None)
Quarter: 2011Q1

REPORT INFORMATION
  Report Type: 
  Country: None (occurrence: None)
  Receive Date: 20110207
  Receipt Date: 20110203
  Transmission Date: 20110831
  Serious: Yes (Congenital Anomaly)
  Sender: FDA-Public Use
  Company Number: 1000018566

PATIENT
  Sex: Female
  Weight: 2.96 kg

DRUGS (1)
  1. ESCITALOPRAM OXALATE [Suspect]
     Dosage: 10 MG (10 MG, 1 IN 1 D), TRANSPLACENTAL; 10 MG (10 MG, 1 IN 1 D), TRANSMAMMARY
     Route: 064
     Dates: start: 20110103

REACTIONS (7)
  - DRUG EXPOSURE VIA BREAST MILK [None]
  - ATRIAL SEPTAL DEFECT [None]
  - DYSPNOEA [None]
  - CAESAREAN SECTION [None]
  - CARBON DIOXIDE INCREASED [None]
  - INCREASED BRONCHIAL SECRETION [None]
  - MATERNAL DRUGS AFFECTING FOETUS [None]
